FAERS Safety Report 26124675 (Version 1)
Quarter: 2025Q4

REPORT INFORMATION
  Report Type: Report from Study
  Country: CA (occurrence: CA)
  Receive Date: 20251205
  Receipt Date: 20251205
  Transmission Date: 20260117
  Serious: Yes (Other)
  Sender: TEVA
  Company Number: CA-TEVA-VS-3398147

PATIENT
  Age: 19 Year
  Sex: Female

DRUGS (1)
  1. AJOVY [Suspect]
     Active Substance: FREMANEZUMAB-VFRM
     Indication: Migraine prophylaxis
     Dosage: LAST DOSE ADMINISTERED DATE 2025-11-26
     Route: 058
     Dates: start: 20251126

REACTIONS (8)
  - Syncope [Unknown]
  - Seizure [Unknown]
  - Eye movement disorder [Unknown]
  - Abdominal pain upper [Unknown]
  - Visual impairment [Unknown]
  - Nausea [Unknown]
  - Pallor [Unknown]
  - Peripheral coldness [Unknown]

NARRATIVE: CASE EVENT DATE: 20251126
